FAERS Safety Report 9200038 (Version 2)
Quarter: 2013Q2

REPORT INFORMATION
  Report Type: Spontaneous
  Country: US (occurrence: US)
  Receive Date: 20130329
  Receipt Date: 20130404
  Transmission Date: 20140414
  Serious: Yes (Other)
  Sender: FDA-Public Use
  Company Number: US-BRISTOL-MYERS SQUIBB COMPANY-18701672

PATIENT
  Age: 70 Year
  Sex: Female
  Weight: 65.3 kg

DRUGS (2)
  1. ABATACEPT SUBQ INJECTION 125MG/ML [Suspect]
     Indication: RHEUMATOID ARTHRITIS
     Dosage: LAST INJECTION ON 19-MAR-2013.
     Route: 058
     Dates: start: 201212
  2. COUMADIN [Concomitant]

REACTIONS (6)
  - Systemic lupus erythematosus [Unknown]
  - Joint swelling [Unknown]
  - Local swelling [Unknown]
  - Fatigue [Unknown]
  - Pain [Unknown]
  - Drug ineffective [Unknown]
